FAERS Safety Report 8641337 (Version 2)
Quarter: 2012Q4

REPORT INFORMATION
  Report Type: 
  Country: GB (occurrence: GB)
  Receive Date: 20120628
  Receipt Date: 20121220
  Transmission Date: 20130627
  Serious: Yes (Death, Hospitalization, Other)
  Sender: FDA-Public Use
  Company Number: GB-ROCHE-1081435

PATIENT
  Age: 64 Year
  Sex: Male

DRUGS (15)
  1. ROACTEMRA [Suspect]
     Indication: RHEUMATOID ARTHRITIS
     Route: 042
     Dates: start: 20111111, end: 20120217
  2. ASPIRIN [Concomitant]
     Route: 065
  3. CO-CODAMOL [Concomitant]
     Route: 065
  4. DIAZEPAM [Concomitant]
     Route: 065
  5. FOLIC ACID [Concomitant]
     Route: 065
  6. ISOSORBIDE MONONITRATE [Concomitant]
     Route: 048
  7. METHOTREXATE [Concomitant]
     Indication: RHEUMATOID ARTHRITIS
     Route: 048
  8. MONTELUKAST [Concomitant]
     Route: 065
  9. NAPROXEN [Concomitant]
     Route: 048
  10. NICORANDIL [Concomitant]
     Route: 065
  11. OMEPRAZOLE [Concomitant]
     Route: 048
  12. SIMVASTATIN [Concomitant]
     Route: 065
  13. TEMAZEPAM [Concomitant]
     Route: 065
  14. VALSARTAN [Concomitant]
     Route: 065
  15. ZEMTARD [Concomitant]
     Route: 065

REACTIONS (3)
  - Death [Fatal]
  - Cholangitis [Unknown]
  - Sepsis [Unknown]
